FAERS Safety Report 5710792-7 (Version None)
Quarter: 2008Q2

REPORT INFORMATION
  Report Type: 
  Country: None (occurrence: None)
  Receive Date: 20080415
  Receipt Date: 20080402
  Transmission Date: 20081010
  Serious: Yes (Other)
  Sender: FDA-Public Use
  Company Number: GXKR2008DE03238

PATIENT
  Age: 4 Year
  Sex: Male

DRUGS (6)
  1. CYCLOSPORINE [Suspect]
     Indication: PROPHYLAXIS AGAINST GRAFT VERSUS HOST DISEASE
  2. ANTIBACTERIALS FOR SYSTEMIC USE (NO INGREDIENTS/SUBSTANCES) [Concomitant]
  3. ANTIFUNGALS (NO INGREDIENTS/SUBSTANCES) [Concomitant]
  4. BUSULFAN (BUSULFAN) [Concomitant]
  5. CYCLOPHOSPHAMIDE [Concomitant]
  6. ANTITHYMOCYTE IMMUNOGLOBULIN (ANTITHYMOCYTE IMMUNOGLOBULIN) [Concomitant]

REACTIONS (6)
  - APNOEA [None]
  - DRUG TOXICITY [None]
  - GRAFT VERSUS HOST DISEASE [None]
  - NERVOUS SYSTEM DISORDER [None]
  - REVERSIBLE POSTERIOR LEUKOENCEPHALOPATHY SYNDROME [None]
  - SOMNOLENCE [None]
